FAERS Safety Report 13370797 (Version 3)
Quarter: 2017Q2

REPORT INFORMATION
  Report Type: Spontaneous
  Country: US (occurrence: US)
  Receive Date: 20170324
  Receipt Date: 20170418
  Transmission Date: 20170830
  Serious: No
  Sender: FDA-Public Use
  Company Number: US-PFIZER INC-2017129539

PATIENT
  Age: 69 Year
  Sex: Female

DRUGS (3)
  1. LATANOPROST. [Suspect]
     Active Substance: LATANOPROST
     Indication: INTRAOCULAR PRESSURE INCREASED
     Dosage: 2 GTT, 1X/DAY, (ONE DROP EACH EYE AT NIGHT)
  2. XALATAN [Suspect]
     Active Substance: LATANOPROST
     Dosage: UNK
  3. LATANOPROST. [Suspect]
     Active Substance: LATANOPROST
     Dosage: UNK

REACTIONS (4)
  - Poor quality drug administered [Unknown]
  - Product contamination [Unknown]
  - Eye irritation [Not Recovered/Not Resolved]
  - Photophobia [Recovered/Resolved]

NARRATIVE: CASE EVENT DATE: 20170322
